FAERS Safety Report 4901284-3 (Version None)
Quarter: 2006Q1

REPORT INFORMATION
  Report Type: 
  Country: None (occurrence: None)
  Receive Date: 20060206
  Receipt Date: 20060125
  Transmission Date: 20060701
  Serious: Yes (Other)
  Sender: FDA-Public Use
  Company Number: PHBS2006JP01515

PATIENT

DRUGS (8)
  1. TOFRANIL [Suspect]
     Dosage: 10 MG/D
     Route: 048
  2. MENESIT [Concomitant]
     Route: 048
  3. RIVOTRIL [Concomitant]
     Route: 048
  4. NAUZELIN [Concomitant]
     Route: 048
  5. SIFROL [Concomitant]
     Route: 048
  6. EVIPROSTAT [Concomitant]
     Route: 048
  7. FLIVAS [Concomitant]
     Route: 048
  8. ARICEPT [Concomitant]
     Route: 048

REACTIONS (2)
  - CYANOSIS [None]
  - RAYNAUD'S PHENOMENON [None]
